FAERS Safety Report 4332500-7 (Version None)
Quarter: 2004Q2

REPORT INFORMATION
  Report Type: 
  Country: None (occurrence: None)
  Receive Date: 20040401
  Receipt Date: 20040322
  Transmission Date: 20050107
  Serious: No
  Sender: FDA-Public Use
  Company Number: 2004AC00046

PATIENT
  Age: 49 Year
  Sex: Female

DRUGS (10)
  1. OMEPRAZOLE [Suspect]
     Dosage: 10 MG DAILY
  2. METHOTREXATE [Suspect]
     Dosage: 7.5 WEEK PO
     Route: 048
  3. ATORVASTATIN [Concomitant]
  4. LEVOTHYROXINE SODIUM [Concomitant]
  5. NO MATCH [Concomitant]
  6. BROMAZEPAM [Concomitant]
  7. PROPRANOLOL [Concomitant]
  8. FOLIC ACID [Concomitant]
  9. ASPIRIN [Concomitant]
  10. DIPYRIDAMOL [Concomitant]

REACTIONS (10)
  - ALEXIA [None]
  - AUTOIMMUNE THYROIDITIS [None]
  - BIOPSY BONE MARROW ABNORMAL [None]
  - DIABETES MELLITUS NON-INSULIN-DEPENDENT [None]
  - DRUG INTERACTION [None]
  - INTERSTITIAL LUNG DISEASE [None]
  - LEUKOENCEPHALOPATHY [None]
  - LIVER FUNCTION TEST ABNORMAL [None]
  - MACROCYTOSIS [None]
  - PANCYTOPENIA [None]
